FAERS Safety Report 7270515-X (Version None)
Quarter: 2011Q1

REPORT INFORMATION
  Report Type: 
  Country: None (occurrence: None)
  Receive Date: 20110124
  Receipt Date: 20110124
  Transmission Date: 20110831
  Serious: No
  Sender: FDA-Public Use
  Company Number: None

PATIENT
  Sex: Female

DRUGS (1)
  1. FENTANYL-100 [Suspect]
     Dosage: APPLY 1 PATCH EVERY 72 HOURS

REACTIONS (1)
  - PRODUCT ADHESION ISSUE [None]
